FAERS Safety Report 4474228-9 (Version None)
Quarter: 2004Q4

REPORT INFORMATION
  Report Type: 
  Country: None (occurrence: None)
  Receive Date: 20041008
  Receipt Date: 20040920
  Transmission Date: 20050328
  Serious: Yes (Hospitalization, Other)
  Sender: FDA-Public Use
  Company Number: USA030947086

PATIENT
  Age: 60 Year
  Sex: Female
  Weight: 81 kg

DRUGS (3)
  1. HUMULIN 70/30 [Suspect]
     Indication: DIABETES MELLITUS
     Dosage: 60 U/DAY
  2. DYAZIDE [Concomitant]
  3. POTASSIUM [Concomitant]

REACTIONS (5)
  - ASTHENIA [None]
  - CEREBROVASCULAR ACCIDENT [None]
  - EYE PAIN [None]
  - LACRIMATION INCREASED [None]
  - PHARMACEUTICAL PRODUCT COMPLAINT [None]
